FAERS Safety Report 21505275 (Version 1)
Quarter: 2022Q4

REPORT INFORMATION
  Report Type: Spontaneous
  Country: DE (occurrence: DE)
  Receive Date: 20221026
  Receipt Date: 20221026
  Transmission Date: 20230113
  Serious: No
  Sender: FDA-Public Use
  Company Number: DE-ALKEM LABORATORIES LIMITED-DE-ALKEM-2022-10356

PATIENT
  Age: 50 Year
  Sex: Female
  Weight: 64 kg

DRUGS (16)
  1. FINGOLIMOD [Suspect]
     Active Substance: FINGOLIMOD
     Indication: Relapsing-remitting multiple sclerosis
     Dosage: 0.5 MILLIGRAM
     Route: 048
     Dates: start: 20191021
  2. FINGOLIMOD [Suspect]
     Active Substance: FINGOLIMOD
     Dosage: 0.5 MILLIGRAM
     Route: 048
     Dates: start: 20200226
  3. FINGOLIMOD [Suspect]
     Active Substance: FINGOLIMOD
     Dosage: UNK
     Route: 048
     Dates: start: 20191220
  4. FINGOLIMOD [Suspect]
     Active Substance: FINGOLIMOD
     Dosage: UNK
     Route: 048
     Dates: start: 20201130
  5. COMIRNATY [Concomitant]
     Active Substance: TOZINAMERAN
     Indication: COVID-19 prophylaxis
     Dosage: 10 MICROGRAM
     Route: 030
     Dates: start: 20210615, end: 20210615
  6. COMIRNATY [Concomitant]
     Active Substance: TOZINAMERAN
     Dosage: 10 MICROGRAM (1 TOTAL)
     Route: 030
     Dates: start: 20210504, end: 20210504
  7. ESCITALOPRAM [Concomitant]
     Active Substance: ESCITALOPRAM OXALATE
     Indication: Depression
     Dosage: 20 MILLIGRAM, QD
     Route: 048
     Dates: start: 20210615
  8. ESCITALOPRAM [Concomitant]
     Active Substance: ESCITALOPRAM OXALATE
     Dosage: 20 MILLIGRAM, QD
     Route: 048
     Dates: start: 20190808, end: 20210614
  9. PREGABALIN [Concomitant]
     Active Substance: PREGABALIN
     Indication: Restless legs syndrome
     Dosage: 150 MILLIGRAM, QD (EVERY OTHER DAY )
     Route: 048
     Dates: start: 20181122
  10. Spasmex [Concomitant]
     Indication: Bladder dysfunction
     Dosage: 0.5 MILLIGRAM
     Route: 048
     Dates: start: 20191215
  11. Spasmex [Concomitant]
     Dosage: 5 MILLIGRAM, TID (EVERY 8 HOURS)
     Route: 048
     Dates: start: 20210217
  12. Tropsium chloride [Concomitant]
     Indication: Bladder dysfunction
     Dosage: 5 MILLIGRAM, TID (EVERY 8 HOURS)
     Route: 048
     Dates: start: 20190808
  13. TECFIDERA [Concomitant]
     Active Substance: DIMETHYL FUMARATE
     Indication: Multiple sclerosis
     Dosage: 120 MILLIGRAM (EVERY 0.5 DAY)
     Route: 048
     Dates: start: 20220209, end: 20220216
  14. TECFIDERA [Concomitant]
     Active Substance: DIMETHYL FUMARATE
     Dosage: 240 MILLIGRAM (EVERY 0.5 DAY)
     Route: 048
     Dates: start: 20220217, end: 202205
  15. TYSABRI [Concomitant]
     Active Substance: NATALIZUMAB
     Indication: Multiple sclerosis
     Dosage: 300 MILLIGRAM (EVERY 1 MONTH)
     Route: 042
     Dates: start: 20220516
  16. ZEPOSIA [Concomitant]
     Active Substance: OZANIMOD HYDROCHLORIDE
     Indication: Multiple sclerosis
     Dosage: 0.92 MILLIGRAM, QD
     Route: 048
     Dates: start: 20210419, end: 20220128

REACTIONS (1)
  - Lymphopenia [Recovered/Resolved]

NARRATIVE: CASE EVENT DATE: 20191216
